FAERS Safety Report 10877834 (Version 5)
Quarter: 2015Q3

REPORT INFORMATION
  Report Type: Spontaneous
  Country: US (occurrence: US)
  Receive Date: 20150302
  Receipt Date: 20150810
  Transmission Date: 20151125
  Serious: Yes (Hospitalization, Other)
  Sender: FDA-Public Use
  Company Number: US-PFIZER INC-2015070930

PATIENT
  Age: 65 Year
  Sex: Female
  Weight: 53 kg

DRUGS (40)
  1. VFEND [Suspect]
     Active Substance: VORICONAZOLE
     Indication: LUNG DISORDER
     Dosage: 200 MG, 2X/DAY
     Route: 048
     Dates: start: 201409
  2. FISH OIL [Concomitant]
     Active Substance: FISH OIL
     Indication: BONE DISORDER
     Dosage: 1000 MG, 1X/DAY
     Route: 048
  3. FLUTICASONE [Concomitant]
     Active Substance: FLUTICASONE\FLUTICASONE PROPIONATE
     Dosage: 50 ?G, 2X/DAY
     Route: 045
  4. NASONEX [Concomitant]
     Active Substance: MOMETASONE FUROATE
     Dosage: UNK, 1X/DAY (2 SPRAYS EACH NOSTRIL ONCE A DAY)
  5. ALBUTEROL SULFATE. [Concomitant]
     Active Substance: ALBUTEROL SULFATE
     Dosage: 3 ML, 4X/DAY (1.25 MG/MG/3 ML SOLUTION FOR NEBULIZATION, MILLILITER(S) INH QID AS NEEDED)
     Dates: start: 20150317, end: 20150415
  6. VITAMIN D [Concomitant]
     Active Substance: CHOLECALCIFEROL
     Indication: BONE DISORDER
     Dosage: UNK, 1X/DAY
  7. NEXIUM [Concomitant]
     Active Substance: ESOMEPRAZOLE MAGNESIUM
     Dosage: 40 MG, UNK
     Route: 048
  8. ALENDRONATE [Concomitant]
     Active Substance: ALENDRONATE SODIUM
     Dosage: 70 MG, UNK
     Route: 048
  9. CIPROFLOXACIN. [Concomitant]
     Active Substance: CIPROFLOXACIN
     Dosage: 500 MG, 2X/DAY
     Route: 048
  10. NAPROXEN. [Concomitant]
     Active Substance: NAPROXEN
     Dosage: 375 MG, UNK
     Route: 048
  11. VITAMIN D2 [Concomitant]
     Active Substance: ERGOCALCIFEROL
     Dosage: UNK
     Route: 048
  12. CEFUROXIME AXETIL. [Concomitant]
     Active Substance: CEFUROXIME AXETIL
     Dosage: 250 MG, 2X/DAY
     Route: 048
  13. CIPROFLOXACIN. [Concomitant]
     Active Substance: CIPROFLOXACIN
     Dosage: 750 MG, UNK
     Route: 048
  14. HYDROCODONE BITARTRATE AND ACETAMINOPHEN [Concomitant]
     Active Substance: ACETAMINOPHEN\HYDROCODONE BITARTRATE
     Dosage: UNK, (HYDROCODONE 5 MG- ACETAMINOPHEN 325 MG TABLET)
     Route: 048
  15. LEVAQUIN [Concomitant]
     Active Substance: LEVOFLOXACIN
     Dosage: 500 MG, DAILY
     Route: 048
  16. LORATADINE. [Concomitant]
     Active Substance: LORATADINE
     Dosage: 10 MG, UNK
     Route: 048
  17. CLONAZEPAM. [Concomitant]
     Active Substance: CLONAZEPAM
     Indication: NERVOUSNESS
     Dosage: 2 MG, 4X/DAY
     Route: 048
  18. LEVOTHYROXINE. [Concomitant]
     Active Substance: LEVOTHYROXINE
     Dosage: 75 ?G, 1X/DAY
  19. TRAMADOL. [Concomitant]
     Active Substance: TRAMADOL
     Dosage: 50 MG, UNK (EVERY 8 HOURS)
     Route: 048
  20. VITAMIN D3 [Concomitant]
     Active Substance: CHOLECALCIFEROL
     Dosage: 1000 UNK, DAILY (1000 UNIT CAPSULE AND 1 CAPSULE PO DAILY)
     Route: 048
  21. VENTOLIN HFA [Concomitant]
     Active Substance: ALBUTEROL SULFATE
     Dosage: 90 ?G, 4X/DAY (90 MCG/ ACTUATION AEROSOL INHALER, 2 INHL, QID AS NEEDED AND 30 DAYS)
     Dates: start: 20150317, end: 20150415
  22. ALCLOMETASONE [Concomitant]
     Active Substance: ALCLOMETASONE
     Dosage: 0.05 %, UNK
     Route: 061
  23. DOXEPIN [Concomitant]
     Active Substance: DOXEPIN
     Dosage: 25 MG, UNK
     Route: 048
  24. PROMETHAZINE VC [Concomitant]
     Active Substance: PHENYLEPHRINE HYDROCHLORIDE\PROMETHAZINE HYDROCHLORIDE
     Dosage: UNK (6.25 MG- 5 MG/ 5 ML)
     Route: 048
  25. QUETIAPINE [Concomitant]
     Active Substance: QUETIAPINE
     Dosage: 100 MG, UNK
     Route: 048
  26. HYDROXYCHLOROQUINE [Concomitant]
     Active Substance: HYDROXYCHLOROQUINE
     Indication: SYSTEMIC LUPUS ERYTHEMATOSUS
     Dosage: 200 MG, 2X/DAY
     Route: 048
  27. VITAMIN B [Concomitant]
     Active Substance: VITAMIN B
     Indication: BONE DISORDER
     Dosage: UNK, 1X/DAY
     Route: 048
  28. MIRTAZAPINE. [Concomitant]
     Active Substance: MIRTAZAPINE
     Dosage: 15 MG, 1X/DAY
  29. SEROQUEL [Concomitant]
     Active Substance: QUETIAPINE FUMARATE
     Dosage: 100 MG, UNK
     Route: 048
  30. VENTOLIN HFA [Concomitant]
     Active Substance: ALBUTEROL SULFATE
     Dosage: 90 ?G, UNK
  31. CEPHALEXIN. [Concomitant]
     Active Substance: CEPHALEXIN
     Dosage: 500 MG, UNK
     Route: 048
  32. QUETIAPINE [Concomitant]
     Active Substance: QUETIAPINE
     Dosage: 300 MG, UNK
     Route: 048
  33. SARNA ANTI-ITCH [Concomitant]
     Dosage: 0.5 %, UNK
     Route: 061
  34. AZITHROMYCIN [Concomitant]
     Active Substance: AZITHROMYCIN ANHYDROUS
     Dosage: 250 MG, UNK
     Route: 048
  35. PREDNISONE. [Concomitant]
     Active Substance: PREDNISONE
     Dosage: 5 MG, UNK
     Route: 048
  36. VFEND [Suspect]
     Active Substance: VORICONAZOLE
     Indication: ASPERGILLUS INFECTION
  37. HYDROXYZINE HCL [Concomitant]
     Active Substance: HYDROXYZINE HYDROCHLORIDE
     Indication: NERVOUSNESS
     Dosage: 25 MG, 3X/DAY
  38. LEVOTHYROXINE. [Concomitant]
     Active Substance: LEVOTHYROXINE
     Dosage: 100 ?G, UNK
     Route: 048
     Dates: start: 20130503
  39. PREDNISONE. [Concomitant]
     Active Substance: PREDNISONE
     Dosage: 10 MG, UNK
     Route: 048
  40. HYDROXYZINE HCL [Concomitant]
     Active Substance: HYDROXYZINE HYDROCHLORIDE
     Dosage: UNK, 4X/DAY

REACTIONS (24)
  - Sinus congestion [Unknown]
  - Thyroid disorder [Unknown]
  - Hypercholesterolaemia [Unknown]
  - Spinal compression fracture [Unknown]
  - Dyspnoea exertional [Unknown]
  - Cataract [Unknown]
  - Arterial occlusive disease [Unknown]
  - Bone disorder [Unknown]
  - Arthralgia [Unknown]
  - Cyst [Unknown]
  - Paranasal sinus hypersecretion [Unknown]
  - Seasonal allergy [Unknown]
  - Uterine disorder [Not Recovered/Not Resolved]
  - Sexual dysfunction [Unknown]
  - Rheumatoid arthritis [Unknown]
  - Abdominal pain [Unknown]
  - Sneezing [Unknown]
  - Activities of daily living impaired [Unknown]
  - Myalgia [Unknown]
  - Painful respiration [Unknown]
  - Aneurysm [Unknown]
  - Systemic lupus erythematosus [Unknown]
  - Arthropathy [Unknown]
  - Wheezing [Unknown]

NARRATIVE: CASE EVENT DATE: 20150105
